FAERS Safety Report 24347036 (Version 1)
Quarter: 2024Q3

REPORT INFORMATION
  Report Type: Spontaneous
  Country: GB (occurrence: GB)
  Receive Date: 20240921
  Receipt Date: 20240921
  Transmission Date: 20241016
  Serious: No
  Sender: ROCHE
  Company Number: GB-ROCHE-10000087517

PATIENT
  Age: 50 Year
  Sex: Female

DRUGS (1)
  1. OCRELIZUMAB [Suspect]
     Active Substance: OCRELIZUMAB
     Indication: Multiple sclerosis
     Dosage: 2 INFUSIONS WERE GIVEN
     Route: 042

REACTIONS (5)
  - Pertussis [Unknown]
  - Pneumonia [Unknown]
  - COVID-19 [Unknown]
  - Herpes zoster [Unknown]
  - Cellulitis [Unknown]
